FAERS Safety Report 7153256-9 (Version None)
Quarter: 2010Q4

REPORT INFORMATION
  Report Type: 
  Country: None (occurrence: None)
  Receive Date: 20101213
  Receipt Date: 20101206
  Transmission Date: 20110411
  Serious: Yes (Death, Other)
  Sender: FDA-Public Use
  Company Number: HU-ROCHE-743947

PATIENT

DRUGS (3)
  1. INTERFERON ALFA-2A [Suspect]
     Indication: MALIGNANT MELANOMA
     Route: 058
  2. INTERFERON ALFA-2A [Suspect]
     Dosage: REDUCED TO 3 X 6 IU DAILY
     Route: 058
  3. INTERFERON ALFA-2B [Suspect]
     Indication: MALIGNANT MELANOMA
     Route: 058

REACTIONS (9)
  - CUTANEOUS SARCOIDOSIS [None]
  - DEATH [None]
  - GOITRE [None]
  - HYPERTHYROIDISM [None]
  - HYPOTHYROIDISM [None]
  - PSORIASIS [None]
  - RHABDOMYOLYSIS [None]
  - THYROIDITIS ACUTE [None]
  - VITILIGO [None]
